FAERS Safety Report 4305018-5 (Version None)
Quarter: 2004Q1

REPORT INFORMATION
  Report Type: 
  Country: None (occurrence: None)
  Receive Date: 20040225
  Receipt Date: 20040225
  Transmission Date: 20041129
  Serious: Yes (Hospitalization)
  Sender: FDA-Public Use
  Company Number: None

PATIENT
  Age: 78 Year
  Sex: Male
  Weight: 61.2 kg

DRUGS (3)
  1. ETHYOL [Suspect]
     Indication: RADIOTHERAPY
     Dosage: 500 MG SQ QD
     Route: 058
     Dates: start: 20040127, end: 20040211
  2. CARBOPLATIN [Concomitant]
  3. TAXOL [Concomitant]

REACTIONS (5)
  - CHEST PAIN [None]
  - DEHYDRATION [None]
  - DYSPNOEA [None]
  - PHARYNGOLARYNGEAL PAIN [None]
  - VOMITING [None]
